FAERS Safety Report 6357258-1 (Version None)
Quarter: 2009Q3

REPORT INFORMATION
  Report Type: 
  Country: None (occurrence: None)
  Receive Date: 20090916
  Receipt Date: 20090903
  Transmission Date: 20100115
  Serious: Yes (Other)
  Sender: FDA-Public Use
  Company Number: PHEH2009US10387

PATIENT
  Sex: Male
  Weight: 75.828 kg

DRUGS (2)
  1. EXJADE [Suspect]
     Indication: MYELOPROLIFERATIVE DISORDER
     Dosage: 2000 MG, QD
     Route: 048
     Dates: end: 20090729
  2. EXJADE [Suspect]
     Indication: IRON OVERLOAD

REACTIONS (14)
  - ANAEMIA [None]
  - ASTHENIA [None]
  - BLOOD PRESSURE DIASTOLIC DECREASED [None]
  - CORONARY ARTERY DISEASE [None]
  - DIARRHOEA [None]
  - DIZZINESS [None]
  - FATIGUE [None]
  - HAEMOGLOBIN DECREASED [None]
  - HEPATOMEGALY [None]
  - INCREASED UPPER AIRWAY SECRETION [None]
  - RASH [None]
  - RENAL FAILURE [None]
  - SPLENOMEGALY [None]
  - TINNITUS [None]
